FAERS Safety Report 20163174 (Version 5)
Quarter: 2022Q1

REPORT INFORMATION
  Report Type: Report from Study
  Country: US (occurrence: US)
  Receive Date: 20211209
  Receipt Date: 20220310
  Transmission Date: 20220423
  Serious: Yes (Other)
  Sender: FDA-Public Use
  Company Number: US-NOVARTISTESTPH-NVSC2021US280458

PATIENT
  Sex: Female

DRUGS (6)
  1. MAYZENT [Suspect]
     Active Substance: SIPONIMOD
     Indication: Multiple sclerosis
     Dosage: 2 MG, QD
     Route: 048
  2. MAYZENT [Suspect]
     Active Substance: SIPONIMOD
     Dosage: 2 MG, QD (TAKE 1 TABLET BY MOUTH ONCE DAILY)
     Route: 048
  3. BIOTIN [Concomitant]
     Active Substance: BIOTIN
     Indication: Product used for unknown indication
     Dosage: UNK
     Route: 065
  4. XYZAL [Concomitant]
     Active Substance: LEVOCETIRIZINE DIHYDROCHLORIDE
     Indication: Product used for unknown indication
     Dosage: UNK
     Route: 065
  5. VITAMIN B12 [Concomitant]
     Active Substance: CYANOCOBALAMIN
     Indication: Product used for unknown indication
     Dosage: UNK
     Route: 065
  6. MINERALS\VITAMINS [Concomitant]
     Active Substance: MINERALS\VITAMINS
     Indication: Product used for unknown indication
     Dosage: UNK
     Route: 065

REACTIONS (14)
  - Multiple sclerosis [Unknown]
  - Urinary incontinence [Unknown]
  - Muscle atrophy [Unknown]
  - Balance disorder [Unknown]
  - Hepatic enzyme increased [Unknown]
  - Dyspnoea [Unknown]
  - Pyrexia [Unknown]
  - Gait disturbance [Unknown]
  - Fall [Unknown]
  - Feeling hot [Unknown]
  - Erythema [Unknown]
  - Fatigue [Unknown]
  - Product dose omission issue [Unknown]
  - Drug ineffective [Unknown]
